FAERS Safety Report 5226239-3 (Version None)
Quarter: 2007Q1

REPORT INFORMATION
  Report Type: 
  Country: None (occurrence: None)
  Receive Date: 20070129
  Receipt Date: 20070117
  Transmission Date: 20070707
  Serious: Yes (Hospitalization)
  Sender: FDA-Public Use
  Company Number: HQWYE656617JAN07

PATIENT
  Age: 70 Year
  Sex: Female

DRUGS (5)
  1. PROPRANOLOL HYDROCHLORIDE [Suspect]
     Indication: HYPERTENSION
     Dosage: 40 MG 2X PER 1 DAY; ORAL
     Route: 048
     Dates: start: 20061101, end: 20061206
  2. ACETAMINOPHEN [Suspect]
     Dosage: 1G 3X PER 1 DAY; ORAL
     Route: 048
  3. INEXIUM (ESOMEPRAZOLE, ) [Suspect]
     Indication: GASTRIC ULCER
     Dosage: 40 MG 1Z PER 1 DAY; ORAL
     Route: 048
  4. ACETAMINOPHEN W/ CODEINE [Suspect]
     Dosage: 1 DOSAGE FORM 1X PER 1 DAY; ORAL
     Route: 048
  5. VALACYCLOVIR HCL [Suspect]
     Indication: HERPES VIRUS INFECTION
     Dosage: UNSPECIFIED; ORAL
     Route: 048
     Dates: start: 20061206, end: 20061211

REACTIONS (11)
  - ABDOMINAL PAIN UPPER [None]
  - BLOOD PRESSURE SYSTOLIC INCREASED [None]
  - BONE PAIN [None]
  - CEREBELLAR SYNDROME [None]
  - CHILLS [None]
  - DIARRHOEA [None]
  - HEART RATE DECREASED [None]
  - HYPERHIDROSIS [None]
  - LIPASE INCREASED [None]
  - VERTIGO [None]
  - VOMITING [None]
